FAERS Safety Report 11367312 (Version 1)
Quarter: 2015Q3

REPORT INFORMATION
  Report Type: Spontaneous
  Country: US (occurrence: US)
  Receive Date: 20150811
  Receipt Date: 20150811
  Transmission Date: 20151125
  Serious: No
  Sender: FDA-Public Use
  Company Number: US-ELI_LILLY_AND_COMPANY-US201201001438

PATIENT
  Age: 39 Year
  Sex: Male
  Weight: 67.57 kg

DRUGS (1)
  1. AXIRON [Suspect]
     Active Substance: TESTOSTERONE
     Indication: BLOOD TESTOSTERONE DECREASED
     Dosage: 60 MG, QD
     Dates: start: 20111122

REACTIONS (3)
  - Joint swelling [Recovered/Resolved]
  - Oedema [Recovered/Resolved]
  - Libido decreased [Unknown]

NARRATIVE: CASE EVENT DATE: 20111231
